FAERS Safety Report 6943826-2 (Version None)
Quarter: 2010Q3

REPORT INFORMATION
  Report Type: 
  Country: None (occurrence: None)
  Receive Date: 20100826
  Receipt Date: 20100817
  Transmission Date: 20110219
  Serious: Yes (Other)
  Sender: FDA-Public Use
  Company Number: A0859819A

PATIENT
  Age: 72 Year
  Sex: Female
  Weight: 75.8 kg

DRUGS (1)
  1. TYKERB [Suspect]
     Indication: PRODUCT USED FOR UNKNOWN INDICATION
     Dosage: 1250MG PER DAY
     Route: 048
     Dates: start: 20100422

REACTIONS (5)
  - ABDOMINAL DISCOMFORT [None]
  - CONSTIPATION [None]
  - DIARRHOEA [None]
  - FATIGUE [None]
  - INSOMNIA [None]
